FAERS Safety Report 8809868 (Version 24)
Quarter: 2017Q3

REPORT INFORMATION
  Report Type: Report from Study
  Country: CA (occurrence: CA)
  Receive Date: 20120926
  Receipt Date: 20170820
  Transmission Date: 20171128
  Serious: Yes (Other)
  Sender: FDA-Public Use
  Company Number: CA-ROCHE-1131737

PATIENT
  Age: 70 Year
  Sex: Female
  Weight: 115 kg

DRUGS (17)
  1. ACTEMRA [Suspect]
     Active Substance: TOCILIZUMAB
     Route: 042
  2. METHOTREXATE. [Suspect]
     Active Substance: METHOTREXATE
     Indication: RHEUMATOID ARTHRITIS
     Route: 058
  3. AVELOX [Concomitant]
     Active Substance: MOXIFLOXACIN HYDROCHLORIDE
  4. METHOTREXATE. [Suspect]
     Active Substance: METHOTREXATE
     Route: 065
     Dates: end: 2017
  5. PREDNISONE. [Concomitant]
     Active Substance: PREDNISONE
     Route: 065
  6. FOLIC ACID. [Concomitant]
     Active Substance: FOLIC ACID
     Route: 048
  7. PANTOLOC [Concomitant]
     Active Substance: PANTOPRAZOLE SODIUM
     Route: 065
  8. CALCIUM D 500 [Concomitant]
     Active Substance: CALCIUM\VITAMIN D
     Route: 048
  9. ACTEMRA [Suspect]
     Active Substance: TOCILIZUMAB
     Indication: RHEUMATOID ARTHRITIS
     Route: 042
     Dates: start: 20101111
  10. ACTEMRA [Suspect]
     Active Substance: TOCILIZUMAB
     Route: 042
     Dates: start: 20150108
  11. NORVASC [Concomitant]
     Active Substance: AMLODIPINE BESYLATE
  12. PAXIL (CANADA) [Concomitant]
  13. ACTEMRA [Suspect]
     Active Substance: TOCILIZUMAB
     Route: 042
     Dates: start: 20111020
  14. ACTEMRA [Suspect]
     Active Substance: TOCILIZUMAB
     Route: 042
     Dates: start: 2008
  15. IMOVANE [Concomitant]
     Active Substance: ZOPICLONE
  16. ACTEMRA [Suspect]
     Active Substance: TOCILIZUMAB
     Route: 042
     Dates: start: 20130919
  17. CELEBREX [Concomitant]
     Active Substance: CELECOXIB
     Route: 048

REACTIONS (29)
  - Spinal compression fracture [Recovering/Resolving]
  - Arthralgia [Unknown]
  - Chest discomfort [Unknown]
  - Injection site haemorrhage [Unknown]
  - Blood pressure increased [Unknown]
  - Lymphoma [Not Recovered/Not Resolved]
  - Weight increased [Unknown]
  - Weight decreased [Not Recovered/Not Resolved]
  - Dyspnoea [Unknown]
  - Lung disorder [Unknown]
  - Laceration [Not Recovered/Not Resolved]
  - Infusion related reaction [Unknown]
  - Fall [Unknown]
  - Pulmonary fibrosis [Not Recovered/Not Resolved]
  - Oral herpes [Recovered/Resolved]
  - Bronchitis [Unknown]
  - Oxygen saturation decreased [Unknown]
  - Pseudolymphoma [Unknown]
  - Herpes zoster [Recovered/Resolved]
  - Pain in extremity [Unknown]
  - Oxygen saturation decreased [Unknown]
  - Oedema peripheral [Not Recovered/Not Resolved]
  - Heart rate decreased [Unknown]
  - Nasopharyngitis [Unknown]
  - Limb discomfort [Recovered/Resolved]
  - Pulmonary fibrosis [Unknown]
  - Secretion discharge [Unknown]
  - Insomnia [Unknown]
  - Toxicity to various agents [Unknown]

NARRATIVE: CASE EVENT DATE: 20120831
